FAERS Safety Report 14389466 (Version 2)
Quarter: 2019Q4

REPORT INFORMATION
  Report Type: Spontaneous
  Country: US (occurrence: US)
  Receive Date: 20180115
  Receipt Date: 20191018
  Transmission Date: 20200122
  Serious: Yes (Other)
  Sender: FDA-Public Use
  Company Number: US-SA-2017SA245925

PATIENT
  Age: 47 Year
  Sex: Female
  Weight: 116.12 kg

DRUGS (10)
  1. ASPRIN [Concomitant]
     Active Substance: ASPIRIN
     Route: 065
  2. TIKOSYN [Concomitant]
     Active Substance: DOFETILIDE
     Route: 065
  3. LOSARTAN. [Concomitant]
     Active Substance: LOSARTAN
     Route: 065
  4. TAXOTERE [Suspect]
     Active Substance: DOCETAXEL
     Indication: BREAST CANCER FEMALE
     Dosage: 175 MG,Q3W
     Route: 042
     Dates: start: 20141215, end: 20141215
  5. TAXOTERE [Suspect]
     Active Substance: DOCETAXEL
     Dosage: 175 MG,Q3W
     Route: 042
     Dates: start: 20150419, end: 20150419
  6. PARAPLATIN [Concomitant]
     Active Substance: CARBOPLATIN
     Indication: BREAST CANCER FEMALE
     Dosage: 751 MG, UNK
     Route: 065
  7. CARBOPLATIN. [Concomitant]
     Active Substance: CARBOPLATIN
     Dosage: 751 MG,UNK
     Route: 065
  8. AMLODIPINE [Concomitant]
     Active Substance: AMLODIPINE BESYLATE
     Route: 065
  9. FUROSEMIDE. [Concomitant]
     Active Substance: FUROSEMIDE
     Route: 065
  10. MONTELUKAST [Concomitant]
     Active Substance: MONTELUKAST SODIUM
     Route: 065

REACTIONS (1)
  - Alopecia [Recovering/Resolving]

NARRATIVE: CASE EVENT DATE: 20150101
